FAERS Safety Report 20864608 (Version 12)
Quarter: 2024Q1

REPORT INFORMATION
  Report Type: Other
  Country: IT (occurrence: None)
  Receive Date: 20220524
  Receipt Date: 20240216
  Transmission Date: 20240410
  Serious: No
  Sender: FDA-Public Use
  Company Number: IT-ROCHE-3101130

PATIENT
  Age: 51 Year
  Sex: Female
  Weight: 48 kg

DRUGS (41)
  1. OCRELIZUMAB [Suspect]
     Active Substance: OCRELIZUMAB
     Indication: Relapsing-remitting multiple sclerosis
     Route: 042
     Dates: start: 20200928, end: 20200928
  2. OCRELIZUMAB [Suspect]
     Active Substance: OCRELIZUMAB
     Route: 042
     Dates: start: 20210414, end: 20210414
  3. OCRELIZUMAB [Suspect]
     Active Substance: OCRELIZUMAB
     Route: 042
     Dates: start: 20221121, end: 20221121
  4. OCRELIZUMAB [Suspect]
     Active Substance: OCRELIZUMAB
     Route: 042
     Dates: start: 20201012, end: 20201012
  5. OCRELIZUMAB [Suspect]
     Active Substance: OCRELIZUMAB
     Route: 042
     Dates: start: 20211026, end: 20211026
  6. OCRELIZUMAB [Suspect]
     Active Substance: OCRELIZUMAB
     Route: 042
     Dates: start: 20220518, end: 20220518
  7. OCRELIZUMAB [Suspect]
     Active Substance: OCRELIZUMAB
     Route: 042
     Dates: start: 20230511, end: 20230511
  8. OCRELIZUMAB [Suspect]
     Active Substance: OCRELIZUMAB
     Route: 042
     Dates: start: 20231115, end: 20231115
  9. OMEPRAZOLE [Concomitant]
     Active Substance: OMEPRAZOLE
     Indication: Prophylaxis
     Route: 048
     Dates: start: 20220128, end: 20220204
  10. MODERNA COVID-19 VACCINE [Concomitant]
     Active Substance: ELASOMERAN
     Indication: Prophylaxis
     Dosage: 1 OTHER
     Route: 030
     Dates: start: 20220121, end: 20220121
  11. PANTOPRAZOLE [Concomitant]
     Active Substance: PANTOPRAZOLE
     Indication: Prophylaxis
     Route: 048
     Dates: start: 20220201, end: 20220206
  12. PANTOPRAZOLE [Concomitant]
     Active Substance: PANTOPRAZOLE
     Route: 048
     Dates: start: 20221013
  13. METHYLPREDNISOLONE [Concomitant]
     Active Substance: METHYLPREDNISOLONE
     Dosage: 21/NOV/2022, 11/MAY/2023, 15/NOV/2023
     Route: 042
     Dates: start: 20220518, end: 20220518
  14. CETIRIZINE [Concomitant]
     Active Substance: CETIRIZINE HYDROCHLORIDE
     Dosage: 21/NOV/2022, 11/MAY/2023,15/NOV/2023
     Route: 048
     Dates: start: 20220518, end: 20220518
  15. CLARITHROMYCIN [Concomitant]
     Active Substance: CLARITHROMYCIN
     Route: 048
     Dates: start: 20221220, end: 20221227
  16. INFLUENZA VIRUS VACCINE [Concomitant]
     Active Substance: INFLUENZA VIRUS VACCINE
     Indication: Prophylaxis
     Dosage: 1 OTHER
     Route: 030
     Dates: start: 20231104, end: 20231104
  17. ACETAMINOPHEN [Concomitant]
     Active Substance: ACETAMINOPHEN
     Route: 048
     Dates: start: 20220211, end: 20220217
  18. ACETAMINOPHEN [Concomitant]
     Active Substance: ACETAMINOPHEN
     Route: 048
     Dates: start: 20220518, end: 20220518
  19. ACETAMINOPHEN [Concomitant]
     Active Substance: ACETAMINOPHEN
     Route: 048
     Dates: start: 20220704, end: 20220705
  20. ACETAMINOPHEN [Concomitant]
     Active Substance: ACETAMINOPHEN
     Route: 048
     Dates: start: 20221211, end: 20221223
  21. ACETAMINOPHEN [Concomitant]
     Active Substance: ACETAMINOPHEN
     Route: 048
     Dates: start: 20230511, end: 20230511
  22. ACETAMINOPHEN [Concomitant]
     Active Substance: ACETAMINOPHEN
     Route: 048
     Dates: start: 20221121, end: 20221121
  23. ACETAMINOPHEN [Concomitant]
     Active Substance: ACETAMINOPHEN
     Route: 048
     Dates: start: 20231115, end: 20231115
  24. VELAMOX [AMOXICILLIN] [Concomitant]
     Route: 048
     Dates: start: 202311, end: 202311
  25. AMOXICILLIN [Concomitant]
     Active Substance: AMOXICILLIN
     Route: 048
     Dates: start: 202312, end: 202312
  26. ARCOXIA [Concomitant]
     Active Substance: ETORICOXIB
     Route: 048
     Dates: start: 20220201, end: 20220206
  27. ARCOXIA [Concomitant]
     Active Substance: ETORICOXIB
     Route: 048
     Dates: start: 20220128, end: 20220204
  28. AZITHROMYCIN [Concomitant]
     Active Substance: AZITHROMYCIN
     Route: 048
     Dates: start: 20220211, end: 20220217
  29. THIOCOLCHICOSIDE [Concomitant]
     Active Substance: THIOCOLCHICOSIDE
     Route: 048
     Dates: start: 20220313, end: 20220320
  30. VOLTAREN [Concomitant]
     Active Substance: DICLOFENAC SODIUM
     Route: 048
     Dates: start: 20220428, end: 20220505
  31. CORTISON CHEMICETINA [Concomitant]
     Dosage: 2 OTHER,
     Route: 047
     Dates: start: 20220404, end: 20220414
  32. CORTISON CHEMICETINA [Concomitant]
     Dosage: 2 OTHER,
     Route: 047
     Dates: start: 20230528, end: 20230607
  33. CEFIXIME [Concomitant]
     Active Substance: CEFIXIME
     Route: 048
     Dates: start: 20221212, end: 20221219
  34. NEURONORM [Concomitant]
     Indication: Adverse event
     Route: 048
     Dates: start: 20230311, end: 20230311
  35. NEURONORM [Concomitant]
     Route: 048
     Dates: start: 20230414
  36. METRONIDAZOLE [Concomitant]
     Active Substance: METRONIDAZOLE
     Indication: Adverse event
     Route: 061
     Dates: start: 20230310, end: 20230511
  37. NIMESULIDE [Concomitant]
     Active Substance: NIMESULIDE
     Dosage: OTHER
     Route: 048
     Dates: start: 20220211, end: 20220217
  38. DICLOFENAC SODIUM [Concomitant]
     Active Substance: DICLOFENAC\DICLOFENAC SODIUM
     Route: 062
     Dates: start: 20230520, end: 20230605
  39. TOBRADEX [Concomitant]
     Active Substance: DEXAMETHASONE\TOBRAMYCIN
     Dosage: 1 OTHER
     Route: 047
     Dates: start: 20230626, end: 20230706
  40. ETORICOXIB [Concomitant]
     Active Substance: ETORICOXIB
     Dosage: 01-FEB-2022
     Route: 048
     Dates: start: 20220128, end: 20220204
  41. METRONIDAZOLE [Concomitant]
     Active Substance: METRONIDAZOLE
     Route: 061
     Dates: start: 20240110

REACTIONS (2)
  - COVID-19 [Recovered/Resolved]
  - Sciatica [Not Recovered/Not Resolved]

NARRATIVE: CASE EVENT DATE: 20220211
